FAERS Safety Report 4379782-3 (Version None)
Quarter: 2004Q2

REPORT INFORMATION
  Report Type: 
  Country: None (occurrence: None)
  Receive Date: 20040614
  Receipt Date: 20040608
  Transmission Date: 20050107
  Serious: Yes (Death, Hospitalization)
  Sender: FDA-Public Use
  Company Number: STA-AE-04-MTX-254

PATIENT

DRUGS (2)
  1. RHEUMATREX [Suspect]
     Indication: RHEUMATOID ARTHRITIS
     Dosage: ORAL
     Route: 048
  2. UNSPECIFIED ANTIBIOTIC (UNSPECIFIED ANTIBIOTIC) [Suspect]

REACTIONS (2)
  - AGRANULOCYTOSIS [None]
  - INTERSTITIAL LUNG DISEASE [None]
